FAERS Safety Report 24526514 (Version 1)
Quarter: 2024Q4

REPORT INFORMATION
  Report Type: Spontaneous
  Country: NL (occurrence: NL)
  Receive Date: 20241021
  Receipt Date: 20241021
  Transmission Date: 20250115
  Serious: No
  Sender: ROCHE
  Company Number: None

PATIENT
  Age: 60 Year
  Sex: Female
  Weight: 66.0 kg

DRUGS (5)
  1. VEMURAFENIB [Suspect]
     Active Substance: VEMURAFENIB
     Indication: Ovarian cancer metastatic
     Dosage: 2X PER DAG 2 STUKS
     Route: 065
     Dates: start: 20220514
  2. COBIMETINIB [Concomitant]
     Active Substance: COBIMETINIB
     Dosage: TABLET, 20 MG (MILLIGRAM)
  3. DESLORATADINE [Concomitant]
     Active Substance: DESLORATADINE
     Dosage: SMELTTABLET, 2,5 MG (MILLIGRAM)
  4. MOMETASONE [Concomitant]
     Active Substance: MOMETASONE
     Dosage: NEUSSPRAY, 50 DOSIS (MICROGRAM PER DOSIS)
  5. MAGNESIUMHYDROXIDE [Concomitant]
     Dosage: 724 MG (MILLIGRAM)

REACTIONS (4)
  - Dry eye [Not Recovered/Not Resolved]
  - Photophobia [Not Recovered/Not Resolved]
  - Blepharitis [Not Recovered/Not Resolved]
  - Eye pain [Not Recovered/Not Resolved]
